FAERS Safety Report 6859938-8 (Version None)
Quarter: 2010Q3

REPORT INFORMATION
  Report Type: 
  Country: None (occurrence: None)
  Receive Date: 20100720
  Receipt Date: 20100707
  Transmission Date: 20110219
  Serious: Yes (Hospitalization)
  Sender: FDA-Public Use
  Company Number: PHHY2010DE44492

PATIENT
  Sex: Male

DRUGS (2)
  1. ACLASTA [Suspect]
     Indication: OSTEOPOROSIS
     Dosage: UNK
     Route: 042
     Dates: start: 20091101
  2. ACLASTA [Suspect]
     Dosage: ONCE YEARLY
     Route: 042
     Dates: start: 20100706

REACTIONS (6)
  - IMPAIRED HEALING [None]
  - OSTEONECROSIS OF JAW [None]
  - PAIN [None]
  - SURGERY [None]
  - TOOTH EXTRACTION [None]
  - WOUND INFECTION [None]
